FAERS Safety Report 8151544-0 (Version None)
Quarter: 2012Q1

REPORT INFORMATION
  Report Type: 
  Country: None (occurrence: None)
  Receive Date: 20120220
  Receipt Date: 20120206
  Transmission Date: 20120608
  Serious: Yes (Death)
  Sender: FDA-Public Use
  Company Number: KR-ROCHE-1041333

PATIENT

DRUGS (4)
  1. HEPARIN [Concomitant]
     Indication: ISCHAEMIC STROKE
     Route: 042
  2. TIROFIBAN HYDROCHLORIDE [Suspect]
     Indication: ISCHAEMIC STROKE
  3. ALTEPLASE [Suspect]
     Indication: ISCHAEMIC STROKE
     Route: 042
  4. UROKINASE [Suspect]
     Indication: ISCHAEMIC STROKE

REACTIONS (1)
  - SHOCK [None]
